FAERS Safety Report 4940105-X (Version None)
Quarter: 2006Q1

REPORT INFORMATION
  Report Type: 
  Country: None (occurrence: None)
  Receive Date: 20060310
  Receipt Date: 20060227
  Transmission Date: 20060701
  Serious: Yes (Other)
  Sender: FDA-Public Use
  Company Number: PHBS2006US03509

PATIENT
  Age: 71 Year
  Sex: Female

DRUGS (1)
  1. PAMIDRONATE DISODIUM [Suspect]
     Indication: MULTIPLE MYELOMA
     Route: 042

REACTIONS (4)
  - ACTINOMYCOSIS [None]
  - BONE DEBRIDEMENT [None]
  - NOCARDIOSIS [None]
  - OSTEONECROSIS [None]
